FAERS Safety Report 9128631 (Version 4)
Quarter: 2013Q2

REPORT INFORMATION
  Report Type: Spontaneous
  Country: JP (occurrence: JP)
  Receive Date: 20130228
  Receipt Date: 20130617
  Transmission Date: 20140414
  Serious: Yes (Hospitalization, Other)
  Sender: FDA-Public Use
  Company Number: JP-ABBOTT-13P-087-1054581-00

PATIENT
  Age: 30 Year
  Sex: Female
  Weight: 41.5 kg

DRUGS (10)
  1. HUMIRA [Suspect]
     Indication: RHEUMATOID ARTHRITIS
     Route: 058
     Dates: start: 20100127, end: 20110203
  2. PREGABALIN [Suspect]
     Indication: RHEUMATOID ARTHRITIS
     Route: 048
     Dates: start: 20110215
  3. PREGABALIN [Suspect]
     Dates: start: 20110228
  4. LOXOPROFEN SODIUM [Concomitant]
     Indication: RHEUMATOID ARTHRITIS
     Dosage: 1 DAILY
     Route: 048
  5. METHOTREXATE [Concomitant]
     Indication: PRODUCT USED FOR UNKNOWN INDICATION
     Route: 048
     Dates: start: 20100112, end: 20100116
  6. METHOTREXATE [Concomitant]
     Route: 048
     Dates: start: 20100117, end: 20110203
  7. METHOTREXATE [Concomitant]
     Dosage: 8 MG/WK ON TUES AND WED
     Dates: start: 20110210
  8. FOLIC ACID [Concomitant]
     Indication: PRODUCT USED FOR UNKNOWN INDICATION
     Dates: start: 20100112
  9. OMEPRAZOLE [Concomitant]
     Indication: GASTRITIS PROPHYLAXIS
     Dates: start: 20100210
  10. KETOPROFEN [Concomitant]
     Indication: RHEUMATOID ARTHRITIS
     Dosage: TRANSDERMAL PATCH
     Route: 062

REACTIONS (20)
  - Lupus nephritis [Recovered/Resolved]
  - Rheumatoid arthritis [Unknown]
  - Pyrexia [Recovered/Resolved]
  - Somnolence [Recovered/Resolved]
  - Radiculopathy [Unknown]
  - Intervertebral disc protrusion [Unknown]
  - Hypocomplementaemia [Unknown]
  - Antiphospholipid antibodies positive [Unknown]
  - Antiphospholipid syndrome [Unknown]
  - DNA antibody positive [Unknown]
  - Lupus-like syndrome [Unknown]
  - Cytomegalovirus test positive [Unknown]
  - Cytomegalovirus test positive [Unknown]
  - Rheumatoid arthritis [Unknown]
  - Pyrexia [Unknown]
  - Arthralgia [Unknown]
  - Pyrexia [Unknown]
  - Pyrexia [Unknown]
  - Pyrexia [Unknown]
  - Protein urine present [Unknown]
